FAERS Safety Report 6107890-5 (Version None)
Quarter: 2009Q1

REPORT INFORMATION
  Report Type: 
  Country: None (occurrence: None)
  Receive Date: 20090309
  Receipt Date: 20090227
  Transmission Date: 20090719
  Serious: Yes (Life-Threatening)
  Sender: FDA-Public Use
  Company Number: JP-MERCK-0901USA04435

PATIENT
  Age: 63 Year
  Sex: Female

DRUGS (29)
  1. PEPCID [Suspect]
     Indication: GASTRIC ULCER
     Route: 042
     Dates: start: 20090114, end: 20090115
  2. CEFMETAZOLE SODIUM [Concomitant]
     Route: 042
     Dates: start: 20090114, end: 20090115
  3. NIFLEC [Concomitant]
     Route: 065
     Dates: start: 20090113
  4. CIMETIDINE [Concomitant]
     Route: 048
  5. FENTANYL CITRATE [Concomitant]
     Indication: EPIDURAL ANAESTHESIA
     Route: 065
     Dates: start: 20090114, end: 20090116
  6. LEVOBUPIVACAINE HYDROCHLORIDE [Concomitant]
     Route: 065
     Dates: start: 20090114, end: 20090116
  7. SEVOFLURANE [Concomitant]
     Route: 065
     Dates: start: 20090114
  8. CEFMETAZOLE [Concomitant]
     Route: 065
     Dates: start: 20090114, end: 20090115
  9. SOLDEM 3A [Concomitant]
     Route: 065
  10. NORVASC [Concomitant]
     Route: 065
  11. ASPARA CA [Concomitant]
     Route: 065
  12. LIVALO [Concomitant]
     Route: 065
  13. FOSAMAX [Concomitant]
     Route: 048
  14. MUSCURATE [Concomitant]
     Route: 065
  15. NEOSTIGMINE METHYLSULFATE [Concomitant]
     Route: 065
  16. ATROPINE SULFATE [Concomitant]
     Route: 065
  17. EPHEDRINE HYDROCHLORIDE [Concomitant]
     Route: 065
  18. NOREPINEPHRINE [Concomitant]
     Route: 065
  19. ROPION [Concomitant]
     Route: 065
  20. LACTEC [Concomitant]
     Route: 065
  21. SOLDEM 1 [Concomitant]
     Route: 065
  22. SODIUM LACTATE [Concomitant]
     Route: 065
  23. PROPOFOL [Concomitant]
     Route: 065
  24. ULTIVA [Concomitant]
     Route: 065
  25. LIDOCAINE HYDROCHLORIDE [Concomitant]
     Route: 065
  26. SODIUM CHLORIDE [Concomitant]
     Route: 065
  27. NICARPINE [Concomitant]
     Route: 065
  28. ONOACT [Concomitant]
     Route: 065
  29. DOPAMINE HYDROCHLORIDE [Concomitant]
     Route: 065

REACTIONS (1)
  - CARDIO-RESPIRATORY ARREST [None]
